FAERS Safety Report 20383468 (Version 1)
Quarter: 2022Q1

REPORT INFORMATION
  Report Type: Report from Study
  Country: JP (occurrence: JP)
  Receive Date: 20220127
  Receipt Date: 20220127
  Transmission Date: 20220424
  Serious: Yes (Hospitalization, Other)
  Sender: FDA-Public Use
  Company Number: JP-SERVIER-S21013057

PATIENT

DRUGS (83)
  1. PEGASPARGASE [Suspect]
     Active Substance: PEGASPARGASE
     Indication: Acute lymphocytic leukaemia
     Dosage: 2400 IU, QD
     Route: 041
     Dates: start: 20201207, end: 20201207
  2. PEGASPARGASE [Suspect]
     Active Substance: PEGASPARGASE
     Dosage: 2550 IU, QD
     Route: 041
     Dates: start: 20210602, end: 20210602
  3. PEGASPARGASE [Suspect]
     Active Substance: PEGASPARGASE
     Dosage: 2750 IU, QD
     Route: 041
     Dates: start: 20210930, end: 20210930
  4. PREDNISOLONE SODIUM SUCCINATE [Suspect]
     Active Substance: PREDNISOLONE SODIUM SUCCINATE
     Indication: Acute lymphocytic leukaemia
     Dosage: 10 MG
     Route: 050
     Dates: start: 20201207, end: 20201207
  5. PREDNISOLONE SODIUM SUCCINATE [Suspect]
     Active Substance: PREDNISOLONE SODIUM SUCCINATE
     Dosage: 10 MG
     Route: 050
     Dates: start: 20201228, end: 20201228
  6. PREDNISOLONE SODIUM SUCCINATE [Suspect]
     Active Substance: PREDNISOLONE SODIUM SUCCINATE
     Dosage: 10 MG
     Route: 050
     Dates: start: 20210114, end: 20210114
  7. PREDNISOLONE SODIUM SUCCINATE [Suspect]
     Active Substance: PREDNISOLONE SODIUM SUCCINATE
     Dosage: 10 MG
     Route: 050
     Dates: start: 20210128, end: 20210128
  8. PREDNISOLONE SODIUM SUCCINATE [Suspect]
     Active Substance: PREDNISOLONE SODIUM SUCCINATE
     Dosage: 10 MG
     Route: 050
     Dates: start: 20210323, end: 20210323
  9. PREDNISOLONE SODIUM SUCCINATE [Suspect]
     Active Substance: PREDNISOLONE SODIUM SUCCINATE
     Dosage: 10 MG
     Route: 050
     Dates: start: 20210413, end: 20210413
  10. PREDNISOLONE SODIUM SUCCINATE [Suspect]
     Active Substance: PREDNISOLONE SODIUM SUCCINATE
     Dosage: 10 MG
     Route: 050
     Dates: start: 20210427, end: 20210427
  11. PREDNISOLONE SODIUM SUCCINATE [Suspect]
     Active Substance: PREDNISOLONE SODIUM SUCCINATE
     Dosage: 10 MG
     Route: 050
     Dates: start: 20210511, end: 20210511
  12. PREDNISOLONE SODIUM SUCCINATE [Suspect]
     Active Substance: PREDNISOLONE SODIUM SUCCINATE
     Dosage: 10 MG
     Route: 050
     Dates: start: 20210701, end: 20210701
  13. PREDNISOLONE SODIUM SUCCINATE [Suspect]
     Active Substance: PREDNISOLONE SODIUM SUCCINATE
     Dosage: 10 MG
     Route: 050
     Dates: start: 20210708, end: 20210708
  14. PREDNISOLONE SODIUM SUCCINATE [Suspect]
     Active Substance: PREDNISOLONE SODIUM SUCCINATE
     Dosage: 10 MG
     Route: 050
     Dates: start: 20211025, end: 20211025
  15. PREDNISOLONE SODIUM SUCCINATE [Suspect]
     Active Substance: PREDNISOLONE SODIUM SUCCINATE
     Dosage: 10 MG
     Route: 050
     Dates: start: 20211101, end: 20211101
  16. CYCLOPHOSPHAMIDE [Suspect]
     Active Substance: CYCLOPHOSPHAMIDE
     Indication: Acute lymphocytic leukaemia
     Dosage: 940 MG, QD
     Route: 042
     Dates: start: 20210105, end: 20210105
  17. CYCLOPHOSPHAMIDE [Suspect]
     Active Substance: CYCLOPHOSPHAMIDE
     Dosage: 940 MG, QD
     Route: 042
     Dates: start: 20210220, end: 20210220
  18. CYCLOPHOSPHAMIDE [Suspect]
     Active Substance: CYCLOPHOSPHAMIDE
     Dosage: 510 MG, QD
     Route: 042
     Dates: start: 20210629, end: 20210629
  19. CYCLOPHOSPHAMIDE [Suspect]
     Active Substance: CYCLOPHOSPHAMIDE
     Dosage: 550 MG, QD
     Route: 042
     Dates: start: 20211022, end: 20211022
  20. MERCAPTOPURINE [Suspect]
     Active Substance: MERCAPTOPURINE
     Indication: Acute lymphocytic leukaemia
     Dosage: 56 MG, QD
     Route: 048
     Dates: start: 20210105, end: 20210201
  21. MERCAPTOPURINE [Suspect]
     Active Substance: MERCAPTOPURINE
     Dosage: 24 MG, QD
     Route: 048
     Dates: start: 20210316, end: 20210405
  22. MERCAPTOPURINE [Suspect]
     Active Substance: MERCAPTOPURINE
     Dosage: 24 MG, QD
     Route: 048
     Dates: start: 20210413, end: 20210517
  23. MERCAPTOPURINE [Suspect]
     Active Substance: MERCAPTOPURINE
     Dosage: 61 MG, QD
     Route: 048
     Dates: start: 20210629, end: 20210712
  24. MERCAPTOPURINE [Suspect]
     Active Substance: MERCAPTOPURINE
     Dosage: 51 MG, QD
     Route: 048
     Dates: start: 20210721, end: 20210725
  25. MERCAPTOPURINE [Suspect]
     Active Substance: MERCAPTOPURINE
     Dosage: 38 MG, QD
     Route: 048
     Dates: start: 20210726, end: 20210808
  26. MERCAPTOPURINE [Suspect]
     Active Substance: MERCAPTOPURINE
     Dosage: 29 MG, QD
     Route: 048
     Dates: start: 20210809, end: 20210914
  27. MERCAPTOPURINE [Suspect]
     Active Substance: MERCAPTOPURINE
     Dosage: 66 MG, QD
     Route: 048
     Dates: start: 20211022, end: 20211104
  28. DEXAMETHASONE [Suspect]
     Active Substance: DEXAMETHASONE
     Indication: Acute lymphocytic leukaemia
     Dosage: UNK UNK, TID
     Route: 048
     Dates: start: 20210601, end: 20210602
  29. DEXAMETHASONE [Suspect]
     Active Substance: DEXAMETHASONE
     Dosage: UNK UNK, TID
     Route: 048
     Dates: start: 20210604, end: 20210614
  30. DEXAMETHASONE [Suspect]
     Active Substance: DEXAMETHASONE
     Dosage: 1.7 MG, TID
     Route: 048
     Dates: start: 20210615, end: 20210617
  31. DEXAMETHASONE [Suspect]
     Active Substance: DEXAMETHASONE
     Dosage: UNK UNK, TID
     Route: 048
     Dates: start: 20210618, end: 20210620
  32. DEXAMETHASONE [Suspect]
     Active Substance: DEXAMETHASONE
     Dosage: UNK UNK, TID
     Route: 048
     Dates: start: 20210621, end: 20210621
  33. DEXAMETHASONE [Suspect]
     Active Substance: DEXAMETHASONE
     Dosage: UNK UNK, TID
     Route: 048
     Dates: start: 20210628, end: 20210630
  34. DEXAMETHASONE [Suspect]
     Active Substance: DEXAMETHASONE
     Dosage: UNK UNK, TID
     Route: 048
     Dates: start: 20210929, end: 20211003
  35. DEXAMETHASONE [Suspect]
     Active Substance: DEXAMETHASONE
     Dosage: UNK UNK, TID
     Route: 048
     Dates: start: 20211013, end: 20211015
  36. DEXAMETHASONE [Suspect]
     Active Substance: DEXAMETHASONE
     Dosage: UNK UNK, TID
     Route: 048
     Dates: start: 20211016, end: 20211018
  37. DEXAMETHASONE [Suspect]
     Active Substance: DEXAMETHASONE
     Dosage: UNK UNK, TID
     Route: 048
     Dates: start: 20211019, end: 20211021
  38. DEXAMETHASONE SODIUM PHOSPHATE [Suspect]
     Active Substance: DEXAMETHASONE SODIUM PHOSPHATE
     Indication: Acute lymphocytic leukaemia
     Dosage: UNK UNK, TID
     Route: 042
     Dates: start: 20210603, end: 20210603
  39. DEXAMETHASONE SODIUM PHOSPHATE [Suspect]
     Active Substance: DEXAMETHASONE SODIUM PHOSPHATE
     Dosage: 3.5 MG, BID
     Route: 042
     Dates: start: 20211004, end: 20211004
  40. DEXAMETHASONE SODIUM PHOSPHATE [Suspect]
     Active Substance: DEXAMETHASONE SODIUM PHOSPHATE
     Dosage: UNK UNK, TID
     Route: 042
     Dates: start: 20211005, end: 20211012
  41. PREDNISOLONE [Suspect]
     Active Substance: PREDNISOLONE
     Indication: Acute lymphocytic leukaemia
     Dosage: 15 MG
     Route: 042
     Dates: start: 20201126, end: 20201126
  42. PREDNISOLONE [Suspect]
     Active Substance: PREDNISOLONE
     Dosage: 29 MG
     Route: 042
     Dates: start: 20201127, end: 20201127
  43. PREDNISOLONE [Suspect]
     Active Substance: PREDNISOLONE
     Dosage: 44 MG
     Route: 042
     Dates: start: 20201128, end: 20201129
  44. PREDNISOLONE [Suspect]
     Active Substance: PREDNISOLONE
     Dosage: 58 MG
     Route: 042
     Dates: start: 20201207, end: 20201207
  45. PREDNISOLONE [Suspect]
     Active Substance: PREDNISOLONE
     Dosage: 58 MG
     Route: 042
     Dates: start: 20201210, end: 20201210
  46. PREDNISOLONE [Suspect]
     Active Substance: PREDNISOLONE
     Dosage: 14 MG
     Route: 042
     Dates: start: 20201228, end: 20201228
  47. PREDNISOLONE [Suspect]
     Active Substance: PREDNISOLONE
     Indication: Acute lymphocytic leukaemia
     Dosage: 58 MG
     Route: 048
     Dates: start: 20201130, end: 20201203
  48. PREDNISOLONE [Suspect]
     Active Substance: PREDNISOLONE
     Dosage: 58 MG
     Route: 048
     Dates: start: 20201103, end: 20201206
  49. PREDNISOLONE [Suspect]
     Active Substance: PREDNISOLONE
     Dosage: 58 MG
     Route: 048
     Dates: start: 20201208, end: 20201209
  50. PREDNISOLONE [Suspect]
     Active Substance: PREDNISOLONE
     Dosage: 58 MG
     Route: 048
     Dates: start: 20201211, end: 20201223
  51. PREDNISOLONE [Suspect]
     Active Substance: PREDNISOLONE
     Dosage: 29 MG
     Route: 048
     Dates: start: 20201224, end: 20201226
  52. PREDNISOLONE [Suspect]
     Active Substance: PREDNISOLONE
     Dosage: 14 MG
     Route: 048
     Dates: start: 20201227, end: 20201227
  53. PREDNISOLONE [Suspect]
     Active Substance: PREDNISOLONE
     Dosage: 14 MG
     Route: 048
     Dates: start: 20201229, end: 20201229
  54. PREDNISOLONE [Suspect]
     Active Substance: PREDNISOLONE
     Dosage: 7.2 MG
     Route: 048
     Dates: start: 20201230, end: 20210101
  55. METHOTREXATE [Suspect]
     Active Substance: METHOTREXATE
     Indication: Acute lymphocytic leukaemia
     Dosage: 1.9 MG
     Route: 041
     Dates: start: 20210323, end: 20210324
  56. METHOTREXATE [Suspect]
     Active Substance: METHOTREXATE
     Dosage: 1.9 MG
     Route: 041
     Dates: start: 20210413, end: 20210414
  57. METHOTREXATE [Suspect]
     Active Substance: METHOTREXATE
     Dosage: 1.9 MG
     Route: 041
     Dates: start: 20210427, end: 20210428
  58. METHOTREXATE [Suspect]
     Active Substance: METHOTREXATE
     Dosage: 1.9 MG
     Route: 041
     Dates: start: 20210511, end: 20210512
  59. METHOTREXATE [Suspect]
     Active Substance: METHOTREXATE
     Indication: Acute lymphocytic leukaemia
     Dosage: 20 MG, QD
     Route: 048
     Dates: start: 20210721, end: 20210721
  60. METHOTREXATE [Suspect]
     Active Substance: METHOTREXATE
     Dosage: 20 MG, QD
     Route: 048
     Dates: start: 20210802, end: 20210802
  61. METHOTREXATE [Suspect]
     Active Substance: METHOTREXATE
     Dosage: 20 MG, QD
     Route: 048
     Dates: start: 20210806, end: 20210806
  62. METHOTREXATE [Suspect]
     Active Substance: METHOTREXATE
     Dosage: 20 MG, QD
     Route: 048
     Dates: start: 20210811, end: 20210811
  63. METHOTREXATE [Suspect]
     Active Substance: METHOTREXATE
     Dosage: 20 MG, QD
     Route: 048
     Dates: start: 20210818, end: 20210818
  64. METHOTREXATE [Suspect]
     Active Substance: METHOTREXATE
     Dosage: 20 MG, QD
     Route: 048
     Dates: start: 20210825, end: 20210825
  65. METHOTREXATE [Suspect]
     Active Substance: METHOTREXATE
     Dosage: 20 MG, QD
     Route: 048
     Dates: start: 20210901, end: 20210901
  66. PIRARUBICIN HYDROCHLORIDE [Suspect]
     Active Substance: PIRARUBICIN HYDROCHLORIDE
     Indication: Product used for unknown indication
     Dosage: UNK
     Route: 065
     Dates: start: 20211006
  67. CYTARABINE [Suspect]
     Active Substance: CYTARABINE
     Indication: Product used for unknown indication
     Dosage: UNK
     Route: 065
     Dates: start: 20211024, end: 20211027
  68. CYTARABINE [Suspect]
     Active Substance: CYTARABINE
     Dosage: UNK
     Route: 065
     Dates: start: 20211031, end: 20211103
  69. ATOVAQUONE [Concomitant]
     Active Substance: ATOVAQUONE
     Indication: Product used for unknown indication
     Dosage: UNK
     Route: 048
     Dates: start: 20211012
  70. TN UNSPECIFIED [Concomitant]
     Indication: Product used for unknown indication
     Dosage: UNK
     Route: 065
     Dates: start: 20201214
  71. DIFLUCORTOLONE VALERATE\LIDOCAINE [Concomitant]
     Active Substance: DIFLUCORTOLONE VALERATE\LIDOCAINE
     Indication: Product used for unknown indication
     Dosage: UNK
     Route: 065
     Dates: start: 20211102
  72. TN UNSPECIFIED [Concomitant]
     Indication: Product used for unknown indication
     Dosage: UNK
     Route: 048
     Dates: start: 20201129
  73. ACETAMINOPHEN [Concomitant]
     Active Substance: ACETAMINOPHEN
     Indication: Product used for unknown indication
     Dosage: UNK
     Route: 065
     Dates: start: 20211110, end: 20211110
  74. HYDROXYZINE HYDROCHLORIDE [Concomitant]
     Active Substance: HYDROXYZINE HYDROCHLORIDE
     Indication: Product used for unknown indication
     Dosage: UNK
     Route: 065
     Dates: start: 20211110
  75. SOLU-CORTEF [Concomitant]
     Active Substance: HYDROCORTISONE SODIUM SUCCINATE
     Indication: Product used for unknown indication
     Dosage: UNK
     Route: 065
     Dates: start: 20211110
  76. IRRADIATED PLATELET CONCENTRATE, LEUKOCYTES R [Concomitant]
     Indication: Product used for unknown indication
     Dosage: UNK
     Route: 065
     Dates: start: 20211110
  77. FLURBIPROFEN AXETIL [Concomitant]
     Active Substance: FLURBIPROFEN AXETIL
     Indication: Product used for unknown indication
     Dosage: UNK
     Route: 065
     Dates: start: 20211111
  78. LENOGRASTIM [Concomitant]
     Active Substance: LENOGRASTIM
     Indication: Product used for unknown indication
     Dosage: UNK
     Route: 065
     Dates: start: 20211106
  79. SOLITA-T NO.2 [Concomitant]
     Indication: Product used for unknown indication
     Dosage: UNK
     Route: 065
     Dates: start: 20211110
  80. TN UNSPECIFIED [Concomitant]
     Indication: Product used for unknown indication
     Dosage: UNK
     Route: 065
     Dates: start: 20211110
  81. PREDONINE [Concomitant]
     Active Substance: PREDNISOLONE
     Indication: Product used for unknown indication
     Dosage: UNK
     Route: 065
     Dates: start: 20211110
  82. TN UNSPECIFIED [Concomitant]
     Indication: Product used for unknown indication
     Dosage: UNK
     Route: 065
     Dates: start: 20211110
  83. PIPERACETAZINE\TAZOBACTAM [Concomitant]
     Active Substance: PIPERACETAZINE\TAZOBACTAM
     Indication: Product used for unknown indication
     Dosage: UNK
     Route: 065
     Dates: start: 20211110

REACTIONS (1)
  - Respiratory failure [Recovered/Resolved]

NARRATIVE: CASE EVENT DATE: 20211111
